FAERS Safety Report 13400969 (Version 2)
Quarter: 2017Q2

REPORT INFORMATION
  Report Type: Spontaneous
  Country: FR (occurrence: FR)
  Receive Date: 20170404
  Receipt Date: 20170517
  Transmission Date: 20170830
  Serious: Yes (Other)
  Sender: FDA-Public Use
  Company Number: FR-GLAXOSMITHKLINE-FR2017GSK046726

PATIENT
  Age: 27 Year
  Sex: Female

DRUGS (3)
  1. OPTIMIZETTE [Suspect]
     Active Substance: DESOGESTREL
     Indication: CONTRACEPTION
     Dosage: 75 MG, QD
     Route: 048
  2. VENTOLINE [Suspect]
     Active Substance: ALBUTEROL
     Indication: ASTHMA
     Route: 055
  3. PROPYLEX [Suspect]
     Active Substance: PROPYLENE GLYCOL
     Indication: HYPERTHYROIDISM
     Dosage: UNK
     Route: 048
     Dates: start: 201606

REACTIONS (2)
  - Pericarditis [Recovering/Resolving]
  - Antineutrophil cytoplasmic antibody positive [Not Recovered/Not Resolved]

NARRATIVE: CASE EVENT DATE: 20170119
